FAERS Safety Report 25968104 (Version 2)
Quarter: 2025Q4

REPORT INFORMATION
  Report Type: Report from Study
  Country: US (occurrence: US)
  Receive Date: 20251028
  Receipt Date: 20251104
  Transmission Date: 20260118
  Serious: Yes (Hospitalization)
  Sender: BAUSCH AND LOMB
  Company Number: US-BAUSCH-BH-2025-019348

PATIENT
  Age: 65 Year
  Sex: Female

DRUGS (1)
  1. XIFAXAN [Suspect]
     Active Substance: RIFAXIMIN
     Indication: Dysbiosis
     Dosage: STARTED TAKING XIFAXAN IN NOV-2024 / DEC-2024
     Route: 065
     Dates: start: 2024

REACTIONS (1)
  - Gastrointestinal haemorrhage [Unknown]
